FAERS Safety Report 7909102-6 (Version None)
Quarter: 2011Q4

REPORT INFORMATION
  Report Type: 
  Country: None (occurrence: None)
  Receive Date: 20111111
  Receipt Date: 20111107
  Transmission Date: 20120403
  Serious: Yes (Hospitalization)
  Sender: FDA-Public Use
  Company Number: US-PFIZER INC-2011271603

PATIENT
  Age: 89 Year
  Sex: Female

DRUGS (2)
  1. ATENOLOL [Concomitant]
     Indication: HYPERTENSION
     Dosage: UNK
  2. NIFEDIPINE [Suspect]
     Indication: HYPERTENSION
     Dosage: UNK
     Dates: start: 20111001, end: 20111001

REACTIONS (3)
  - NAUSEA [None]
  - DIZZINESS [None]
  - MALAISE [None]
